FAERS Safety Report 4314743-1 (Version None)
Quarter: 2004Q1

REPORT INFORMATION
  Report Type: 
  Country: None (occurrence: None)
  Receive Date: 20040309
  Receipt Date: 20040309
  Transmission Date: 20041129
  Serious: Yes (Disabling)
  Sender: FDA-Public Use
  Company Number: None

PATIENT
  Age: 86 Year
  Sex: Male
  Weight: 74.3899 kg

DRUGS (1)
  1. PHENYTOIN SODIUM [Suspect]
     Dosage: 2 EA NIGHT
     Dates: start: 19870101

REACTIONS (4)
  - ARTHROPATHY [None]
  - GYNAECOMASTIA [None]
  - MUSCULOSKELETAL STIFFNESS [None]
  - PAIN [None]
